FAERS Safety Report 8412342-3 (Version None)
Quarter: 2012Q2

REPORT INFORMATION
  Report Type: 
  Country: None (occurrence: None)
  Receive Date: 20120605
  Receipt Date: 20120515
  Transmission Date: 20120825
  Serious: No
  Sender: FDA-Public Use
  Company Number: US-AMGEN-USASP2012030826

PATIENT
  Age: 52 Year
  Sex: Female

DRUGS (2)
  1. VITAMIN B12                        /00056201/ [Concomitant]
     Indication: FATIGUE
     Dosage: UNK
  2. ENBREL [Suspect]
     Indication: RHEUMATOID ARTHRITIS
     Dosage: 50 MG, QWK
     Dates: start: 20090902, end: 20120502

REACTIONS (1)
  - ADMINISTRATION SITE REACTION [None]
